FAERS Safety Report 15541657 (Version 1)
Quarter: 2018Q4

REPORT INFORMATION
  Report Type: Spontaneous
  Country: US (occurrence: US)
  Receive Date: 20181023
  Receipt Date: 20181023
  Transmission Date: 20190205
  Serious: Yes (Hospitalization)
  Sender: FDA-Public Use
  Company Number: US-JNJFOC-20181027715

PATIENT
  Age: 50 Year
  Sex: Male

DRUGS (1)
  1. INVOKANA [Suspect]
     Active Substance: CANAGLIFLOZIN
     Indication: DIABETES MELLITUS INADEQUATE CONTROL
     Route: 048
     Dates: start: 20160209

REACTIONS (4)
  - Toe amputation [Unknown]
  - Toe amputation [Unknown]
  - Foot amputation [Unknown]
  - Gas gangrene [Unknown]

NARRATIVE: CASE EVENT DATE: 201703
